FAERS Safety Report 17944286 (Version 1)
Quarter: 2020Q2

REPORT INFORMATION
  Report Type: Spontaneous
  Country: ZA (occurrence: ZA)
  Receive Date: 20200625
  Receipt Date: 20200625
  Transmission Date: 20200714
  Serious: Yes (Death, Other)
  Sender: FDA-Public Use
  Company Number: ZA-GLAXOSMITHKLINE-ZA2020EME105196

PATIENT
  Sex: Female

DRUGS (1)
  1. GRANDPA [Suspect]
     Active Substance: ACETAMINOPHEN\ASPIRIN\CAFFEINE
     Indication: PAIN
     Dosage: UNK

REACTIONS (3)
  - Drug dependence [Unknown]
  - Complication associated with device [Fatal]
  - Blood disorder [Unknown]
